FAERS Safety Report 9935179 (Version 1)
Quarter: 2014Q1

REPORT INFORMATION
  Report Type: Spontaneous
  Country: US (occurrence: US)
  Receive Date: 20140228
  Receipt Date: 20140228
  Transmission Date: 20141002
  Serious: Yes (Hospitalization)
  Sender: FDA-Public Use
  Company Number: US-JNJFOC-20140213722

PATIENT
  Sex: Male
  Weight: 136.08 kg

DRUGS (2)
  1. XARELTO [Suspect]
     Indication: DEEP VEIN THROMBOSIS
     Route: 048
     Dates: start: 201304, end: 20140217
  2. XARELTO [Suspect]
     Indication: PULMONARY EMBOLISM
     Route: 048
     Dates: start: 201304, end: 20140217

REACTIONS (6)
  - Venous thrombosis limb [Unknown]
  - Hepatic steatosis [Unknown]
  - Pulmonary embolism [Unknown]
  - Pulmonary vein occlusion [Unknown]
  - Electrocardiogram ST-T segment abnormal [Unknown]
  - Drug dose omission [Unknown]
